FAERS Safety Report 5494043-7 (Version None)
Quarter: 2007Q4

REPORT INFORMATION
  Report Type: 
  Country: None (occurrence: None)
  Receive Date: 20071023
  Receipt Date: 20071008
  Transmission Date: 20080405
  Serious: Yes (Hospitalization)
  Sender: FDA-Public Use
  Company Number: FR-PFIZER INC-2007085800

PATIENT
  Sex: Female

DRUGS (11)
  1. ATARAX [Suspect]
     Indication: ANGIOEDEMA
     Route: 042
     Dates: start: 20070521, end: 20070521
  2. ATARAX [Suspect]
     Dosage: DAILY DOSE:75MG
     Route: 048
     Dates: start: 20070521, end: 20070530
  3. HYDROXYZINE HYDROCHLORIDE [Suspect]
     Indication: ANGIOEDEMA
     Dates: start: 20070501, end: 20070501
  4. LEVOCETIRIZINE [Suspect]
     Indication: DRUG RASH WITH EOSINOPHILIA AND SYSTEMIC SYMPTOMS
     Dosage: TEXT:1 DF
     Route: 048
     Dates: start: 20070530, end: 20070601
  5. IBUPROFEN [Suspect]
     Route: 048
     Dates: start: 20070519, end: 20070521
  6. FLUOXETINE HYDROCHLORIDE [Concomitant]
     Indication: DEPRESSION
     Route: 048
  7. METHYLPREDNISOLONE SODIUM SUCCINATE [Concomitant]
     Indication: ANGIOEDEMA
     Route: 042
     Dates: start: 20070521, end: 20070501
  8. PREDNISOLONE SODIUM SULFOBENZOATE [Concomitant]
     Indication: ANGIOEDEMA
     Route: 048
     Dates: start: 20070501, end: 20070611
  9. BETAMETHASONE VALERATE [Concomitant]
     Route: 058
  10. HETASTARCH 6% IN 0.9% SODIUM CHLORIDE IN PLASTIC CONTAINER [Concomitant]
     Indication: ANGIOEDEMA
     Dates: start: 20070521, end: 20070501
  11. RANITIDINE HYDROCHLORIDE [Concomitant]
     Indication: PROPHYLAXIS AGAINST GASTROINTESTINAL ULCER

REACTIONS (1)
  - DRUG RASH WITH EOSINOPHILIA AND SYSTEMIC SYMPTOMS [None]
